FAERS Safety Report 14930957 (Version 1)
Quarter: 2018Q2

REPORT INFORMATION
  Report Type: Spontaneous
  Country: IT (occurrence: IT)
  Receive Date: 20180524
  Receipt Date: 20180524
  Transmission Date: 20180711
  Serious: Yes (Death)
  Sender: FDA-Public Use
  Company Number: IT-TWI PHARMACEUTICAL, INC-2018SCTW000007

PATIENT

DRUGS (10)
  1. VALERIAN [Concomitant]
     Active Substance: VALERIAN
     Indication: SEDATIVE THERAPY
     Dosage: UNK, UNKNOWN
     Route: 065
  2. FLUOXETINE [Concomitant]
     Active Substance: FLUOXETINE HYDROCHLORIDE
     Indication: ANTIDEPRESSANT THERAPY
     Dosage: UNK UNKNOWN, UNKNOWN
     Route: 065
  3. DIPOTASSIUM CLORAZEPATE [Concomitant]
     Active Substance: CLORAZEPATE DIPOTASSIUM
     Indication: PRODUCT USED FOR UNKNOWN INDICATION
     Dosage: UNK UNKNOWN, UNKNOWN
     Route: 065
  4. TOPIRAMATE. [Concomitant]
     Active Substance: TOPIRAMATE
     Indication: PRODUCT USED FOR UNKNOWN INDICATION
     Dosage: UNK, UNKNOWN
     Route: 065
  5. ALOE, GINSENG, GUARAN?, HYPERICUM [Concomitant]
     Indication: PRODUCT USED FOR UNKNOWN INDICATION
     Dosage: UNK, UNKNOWN
     Route: 065
  6. SATIEREAL, GRIFFONIA, GLUCOMANNAN [Concomitant]
     Indication: PRODUCT USED FOR UNKNOWN INDICATION
     Dosage: UNK, UNKNOWN
     Route: 065
  7. PHENDIMETRAZINE. [Suspect]
     Active Substance: PHENDIMETRAZINE TARTRATE
     Indication: OVERWEIGHT
     Dosage: 100 TO 225 MG/DAY, UNKNOWN
     Route: 065
  8. BUPROPION HYDROCHLORIDE. [Suspect]
     Active Substance: BUPROPION HYDROCHLORIDE
     Indication: OVERWEIGHT
     Dosage: 100 TO 150 MG/DAY, UNKNOWN, SCHEDULED IN 9 CYCLES
     Route: 065
  9. PHENYLPROPANOLAMINE [Suspect]
     Active Substance: PHENYLPROPANOLAMINE
     Indication: OVERWEIGHT
     Dosage: 30 TO 90 MG/DAY, UNKNOWN
     Route: 065
  10. GALENIC PRODUCTS INCLUDING LAXATIVE (CASCARA, RHUBARB) [Concomitant]
     Indication: PRODUCT USED FOR UNKNOWN INDICATION
     Dosage: UNK, UNKNOWN
     Route: 065

REACTIONS (2)
  - Sudden cardiac death [Fatal]
  - Product use in unapproved indication [Unknown]
